FAERS Safety Report 7596959-4 (Version None)
Quarter: 2011Q3

REPORT INFORMATION
  Report Type: 
  Country: None (occurrence: None)
  Receive Date: 20110708
  Receipt Date: 20110627
  Transmission Date: 20111222
  Serious: Yes (Hospitalization, Other)
  Sender: FDA-Public Use
  Company Number: US-CELGENEUS-163-FK228-10120658

PATIENT
  Sex: Female
  Weight: 59 kg

DRUGS (13)
  1. ZOFRAN [Concomitant]
     Dosage: 8 MILLIGRAM
     Route: 048
  2. COMPAZINE [Concomitant]
     Dosage: 10 MILLIGRAM
     Route: 048
  3. FLOVENT HFA [Concomitant]
     Dosage: 220 MICROGRAM
     Route: 055
  4. ROMIDEPSIN [Suspect]
     Dosage: 16.1 MILLIGRAM
     Route: 051
     Dates: start: 20101201
  5. SENOKOT [Concomitant]
     Dosage: 8.6-50MG
     Route: 048
  6. MILK OF MAGNESIA TAB [Concomitant]
     Dosage: 311 MILLIGRAM
     Route: 048
  7. BENEFIBER PLUS CALCIUM [Concomitant]
     Dosage: 3G-300MG/8.8G
     Route: 048
  8. COLACE [Concomitant]
     Dosage: 100 MILLIGRAM
     Route: 048
  9. MORPHINE [Suspect]
     Dosage: 15 MILLIGRAM
     Route: 048
  10. DECADRON [Concomitant]
     Dosage: 4 MILLIGRAM
     Route: 048
  11. NASACORT AQ [Concomitant]
     Dosage: 55 MICROGRAM
     Route: 045
  12. FLUIDS [Concomitant]
     Route: 051
     Dates: start: 20101201
  13. ATIVAN [Concomitant]
     Dosage: .5 MILLIGRAM
     Route: 048

REACTIONS (2)
  - FALL [None]
  - MENTAL STATUS CHANGES [None]
